FAERS Safety Report 6651332-8 (Version None)
Quarter: 2010Q1

REPORT INFORMATION
  Report Type: 
  Country: None (occurrence: None)
  Receive Date: 20100322
  Receipt Date: 20100305
  Transmission Date: 20100710
  Serious: Yes (Hospitalization)
  Sender: FDA-Public Use
  Company Number: 2009000764

PATIENT
  Age: 74 Year
  Sex: Male
  Weight: 66.1 kg

DRUGS (14)
  1. ERLOTINIB HYDROCHLORIDE [Suspect]
     Indication: NON-SMALL CELL LUNG CANCER
     Dosage: (150 MG,QD), ORAL
     Route: 048
     Dates: start: 20090128, end: 20090211
  2. SUNITINIB MALEATE/PLACEBO [Suspect]
     Indication: NON-SMALL CELL LUNG CANCER
     Dosage: (37.5 MG, QD), ORAL
     Route: 048
     Dates: start: 20090128, end: 20090211
  3. OXYCODONE HCL [Concomitant]
  4. ACETAMINOPHEN [Concomitant]
  5. OMEPRAZOLE [Concomitant]
  6. OXYCONTIN [Concomitant]
  7. CITALOPRAM HYDROBROMIDE [Concomitant]
  8. LEVOMEPROMAZINE (LEVOMEPROMAZINE) [Concomitant]
  9. SERETIDE (SERETIDE) [Concomitant]
  10. XALATAN [Concomitant]
  11. DOXAZOSIN MESYLATE [Concomitant]
  12. FINASTERIDE [Concomitant]
  13. SIMVASTATIN [Concomitant]
  14. LOPERAMIDE (LOPERAMIDE) [Concomitant]

REACTIONS (8)
  - BLOOD PRESSURE DECREASED [None]
  - DEHYDRATION [None]
  - DIARRHOEA [None]
  - FATIGUE [None]
  - HYPOMAGNESAEMIA [None]
  - RASH [None]
  - RENAL FAILURE ACUTE [None]
  - THIRST [None]
